FAERS Safety Report 10656525 (Version 2)
Quarter: 2015Q1

REPORT INFORMATION
  Report Type: Spontaneous
  Country: US (occurrence: US)
  Receive Date: 20141216
  Receipt Date: 20150122
  Transmission Date: 20150720
  Serious: Yes (Other)
  Sender: FDA-Public Use
  Company Number: US-CUBIST PHARMACEUTICALS, INC.-2014CBST001592

PATIENT

DRUGS (2)
  1. ENTEREG [Suspect]
     Active Substance: ALVIMOPAN
     Indication: POSTOPERATIVE ILEUS
     Dosage: 12 MG, ONCE, THEN BID
     Route: 048
     Dates: start: 20141125
  2. HYDROMORPHONE [Concomitant]
     Active Substance: HYDROMORPHONE
     Indication: PAIN
     Dosage: 1 MG, Q3H
     Route: 042
     Dates: start: 20141125, end: 20141127

REACTIONS (2)
  - Drug dose omission [Unknown]
  - Ileus [Recovered/Resolved]

NARRATIVE: CASE EVENT DATE: 20141126
